FAERS Safety Report 11988097 (Version 1)
Quarter: 2016Q1

REPORT INFORMATION
  Report Type: Spontaneous
  Country: US (occurrence: None)
  Receive Date: 20160201
  Receipt Date: 20160201
  Transmission Date: 20160526
  Serious: Yes (Disabling, Other)
  Sender: FDA-Public Use
  Company Number: None

PATIENT
  Age: 37 Year
  Sex: Female
  Weight: 90.72 kg

DRUGS (3)
  1. LUPRON [Suspect]
     Active Substance: LEUPROLIDE ACETATE
     Indication: ENDOMETRIOSIS
     Dosage: 2 INJECTIONS INTO THE MUSCLE
     Route: 030
  2. LUPRON [Suspect]
     Active Substance: LEUPROLIDE ACETATE
     Indication: HAEMORRHAGE
     Dosage: 2 INJECTIONS INTO THE MUSCLE
     Route: 030
  3. LUPRON [Suspect]
     Active Substance: LEUPROLIDE ACETATE
     Indication: PAIN
     Dosage: 2 INJECTIONS INTO THE MUSCLE
     Route: 030

REACTIONS (7)
  - Neuralgia [None]
  - Amnesia [None]
  - Fatigue [None]
  - Insomnia [None]
  - Pain [None]
  - Arthralgia [None]
  - Confusional state [None]

NARRATIVE: CASE EVENT DATE: 20160129
